FAERS Safety Report 7954083 (Version 3)
Quarter: 2012Q4

REPORT INFORMATION
  Report Type: 
  Country: US (occurrence: US)
  Receive Date: 20110520
  Receipt Date: 20121127
  Transmission Date: 20130627
  Serious: Yes (Hospitalization, Other)
  Sender: FDA-Public Use
  Company Number: US-ASTRAZENECA-2011SE28597

PATIENT
  Age: 74 Year
  Sex: Female
  Weight: 94.8 kg

DRUGS (6)
  1. CRESTOR [Suspect]
     Route: 048
  2. CRESTOR [Suspect]
     Dosage: 40 mg
     Route: 048
  3. NEXIUM [Suspect]
     Route: 048
  4. SEROQUEL [Suspect]
     Indication: DEPRESSION
     Route: 048
  5. SEROQUEL [Suspect]
     Indication: DEPRESSION
     Route: 048
  6. SEROQUEL [Suspect]
     Indication: DEPRESSION
     Route: 048

REACTIONS (10)
  - Myocardial infarction [Unknown]
  - Stress cardiomyopathy [Unknown]
  - Cardiomyopathy [Unknown]
  - Cerebrovascular accident [Unknown]
  - Weight increased [Unknown]
  - Somnolence [Unknown]
  - Somnolence [Unknown]
  - Lethargy [Unknown]
  - Memory impairment [Unknown]
  - Incorrect dose administered [Unknown]
